FAERS Safety Report 4901164-3 (Version None)
Quarter: 2006Q1

REPORT INFORMATION
  Report Type: 
  Country: None (occurrence: None)
  Receive Date: 20060201
  Receipt Date: 20060126
  Transmission Date: 20060701
  Serious: Yes (Other)
  Sender: FDA-Public Use
  Company Number: 2006AP000071

PATIENT
  Age: 10 Year
  Sex: Male

DRUGS (2)
  1. OXYBUTYNIN CHLORIDE SYRUP [Suspect]
     Indication: ENURESIS
     Dosage: 20 MG, BID; PO
     Route: 048
     Dates: start: 20050123, end: 20051228
  2. STRATTERA [Suspect]
     Indication: ATTENTION DEFICIT/HYPERACTIVITY DISORDER
     Dosage: 40 MG; BID; PO
     Route: 048
     Dates: start: 20040101

REACTIONS (10)
  - DRUG INTERACTION [None]
  - DYSPNOEA [None]
  - ENURESIS [None]
  - EXTRAPYRAMIDAL DISORDER [None]
  - JOINT LOCK [None]
  - PAIN IN JAW [None]
  - SPEECH DISORDER [None]
  - SWELLING FACE [None]
  - TACHYCARDIA [None]
  - TRISMUS [None]
